FAERS Safety Report 14977789 (Version 1)
Quarter: 2018Q2

REPORT INFORMATION
  Report Type: Report from Study
  Country: IN (occurrence: IN)
  Receive Date: 20180606
  Receipt Date: 20180606
  Transmission Date: 20180711
  Serious: Yes (Other)
  Sender: FDA-Public Use
  Company Number: IN-ROCHE-2133705

PATIENT

DRUGS (11)
  1. IRINOTECAN [Suspect]
     Active Substance: IRINOTECAN
     Dosage: OVER 2 HRS
     Route: 042
  2. 5-FU [Suspect]
     Active Substance: FLUOROURACIL
     Dosage: OVER 46 HRS
     Route: 042
  3. IRINOTECAN [Suspect]
     Active Substance: IRINOTECAN
     Dosage: OVER 2 HRS
     Route: 042
  4. LEUCOVORIN. [Suspect]
     Active Substance: LEUCOVORIN
     Indication: COLORECTAL CANCER METASTATIC
     Dosage: OVER 2 HRS
     Route: 042
  5. 5-FU [Suspect]
     Active Substance: FLUOROURACIL
     Dosage: OVER 2 HRS
     Route: 042
  6. BEVACIZUMAB. [Suspect]
     Active Substance: BEVACIZUMAB
     Indication: COLORECTAL CANCER METASTATIC
     Route: 042
  7. LEUCOVORIN. [Suspect]
     Active Substance: LEUCOVORIN
     Dosage: OVER 2 HRS
     Route: 042
  8. 5-FU [Suspect]
     Active Substance: FLUOROURACIL
     Dosage: OVER 2 HRS
     Route: 042
  9. IRINOTECAN [Suspect]
     Active Substance: IRINOTECAN
     Indication: COLORECTAL CANCER METASTATIC
     Dosage: OVER 2 HRS
     Route: 042
  10. LEUCOVORIN. [Suspect]
     Active Substance: LEUCOVORIN
     Dosage: OVER 2 HRS
     Route: 042
  11. 5-FU [Suspect]
     Active Substance: FLUOROURACIL
     Indication: COLORECTAL CANCER METASTATIC
     Route: 040

REACTIONS (4)
  - Lymphatic disorder [Unknown]
  - Infection [Unknown]
  - Blood disorder [Unknown]
  - Infestation [Unknown]
